FAERS Safety Report 24274346 (Version 1)
Quarter: 2024Q3

REPORT INFORMATION
  Report Type: Spontaneous
  Country: JP (occurrence: JP)
  Receive Date: 20240902
  Receipt Date: 20240902
  Transmission Date: 20241017
  Serious: Yes (Death, Life-Threatening, Hospitalization, Other)
  Sender: SANDOZ
  Company Number: JP-NOVPHSZ-PHHY2018JP101438

PATIENT
  Age: 46 Year
  Sex: Female
  Weight: 58.1 kg

DRUGS (7)
  1. ABATACEPT [Suspect]
     Active Substance: ABATACEPT
     Indication: Lupus nephritis
     Dosage: 40 MG TAPERED BY 5 MG EVERY 4 WEEKS
     Route: 065
  2. METHOTREXATE [Suspect]
     Active Substance: METHOTREXATE
     Indication: Lupus nephritis
     Dosage: UNK
     Route: 065
  3. METHYLPREDNISOLONE [Suspect]
     Active Substance: METHYLPREDNISOLONE
     Indication: Lupus nephritis
     Dosage: 1000 MG PULSE THERAPY
     Route: 065
  4. MYCOPHENOLATE MOFETIL [Suspect]
     Active Substance: MYCOPHENOLATE MOFETIL
     Dosage: 1500 MG, QD
     Route: 065
  5. MYCOPHENOLATE MOFETIL [Suspect]
     Active Substance: MYCOPHENOLATE MOFETIL
     Indication: Lupus nephritis
     Dosage: 500 MG, QD
     Route: 065
  6. PREDNISOLONE [Suspect]
     Active Substance: PREDNISOLONE
     Indication: Lupus nephritis
     Dosage: 45 MG, QD
     Route: 065
  7. TACROLIMUS [Suspect]
     Active Substance: TACROLIMUS
     Indication: Product used for unknown indication
     Dosage: 3 MG, QD
     Route: 065

REACTIONS (7)
  - Varicella zoster virus infection [Fatal]
  - Shock haemorrhagic [Fatal]
  - Acute hepatic failure [Not Recovered/Not Resolved]
  - Abdominal pain upper [Fatal]
  - Hepatic function abnormal [Fatal]
  - Blister [Fatal]
  - Coagulopathy [Fatal]
